FAERS Safety Report 16140016 (Version 1)
Quarter: 2019Q2

REPORT INFORMATION
  Report Type: Spontaneous
  Country: US (occurrence: US)
  Receive Date: 20190401
  Receipt Date: 20190401
  Transmission Date: 20190711
  Serious: No
  Sender: FDA-Public Use
  Company Number: US-BAUSCH-BL-2019-008308

PATIENT
  Age: 38 Year
  Sex: Female

DRUGS (1)
  1. ZIRGAN [Suspect]
     Active Substance: GANCICLOVIR
     Indication: OPHTHALMIC HERPES SIMPLEX
     Dosage: AS DIRECTED?APPLIED FOUR TIMES
     Route: 065
     Dates: start: 20190128, end: 20190129

REACTIONS (5)
  - Hypoaesthesia eye [Recovering/Resolving]
  - Corneal erosion [Recovering/Resolving]
  - Visual acuity reduced [Recovering/Resolving]
  - Pupillary light reflex tests abnormal [Recovering/Resolving]
  - Drug hypersensitivity [Recovering/Resolving]

NARRATIVE: CASE EVENT DATE: 20190128
